FAERS Safety Report 4696125-6 (Version None)
Quarter: 2005Q2

REPORT INFORMATION
  Report Type: 
  Country: None (occurrence: None)
  Receive Date: 20050620
  Receipt Date: 20050606
  Transmission Date: 20051028
  Serious: Yes (Death, Other)
  Sender: FDA-Public Use
  Company Number: 2005085915

PATIENT
  Age: 60 Year
  Sex: Female

DRUGS (8)
  1. ALPRAZOLAM [Suspect]
     Indication: ILL-DEFINED DISORDER
  2. ZOPIKLON NM PHARMA (ZOPICLONE) [Suspect]
     Indication: ILL-DEFINED DISORDER
  3. KLIOGEST (ESTRADIOL, NORETHISTERONE ACETATE) [Suspect]
     Indication: MENOPAUSAL SYMPTOMS
     Dosage: ORAL
     Route: 048
     Dates: start: 19990914, end: 20050125
  4. REMERON [Suspect]
     Indication: ILL-DEFINED DISORDER
  5. CARBAMAZEPINE [Suspect]
     Indication: ILL-DEFINED DISORDER
  6. NOZINAN (LEVOMEPROMAZINE) [Suspect]
     Indication: ILL-DEFINED DISORDER
  7. SPIRIVA [Concomitant]
  8. BUVENTOL EASYHALER (SALBUTAMOL SULFATE) [Concomitant]

REACTIONS (4)
  - ARTERIOSCLEROSIS [None]
  - CHRONIC OBSTRUCTIVE PULMONARY DISEASE [None]
  - EMBOLISM [None]
  - RENAL NEOPLASM [None]
